FAERS Safety Report 22603698 (Version 1)
Quarter: 2023Q2

REPORT INFORMATION
  Report Type: Spontaneous
  Country: GB (occurrence: GB)
  Receive Date: 20230615
  Receipt Date: 20230615
  Transmission Date: 20230722
  Serious: Yes (Other)
  Sender: FDA-Public Use
  Company Number: GB-MLMSERVICE-20230530-4313735-1

PATIENT
  Age: 60 Year
  Sex: Female

DRUGS (10)
  1. RISPERIDONE [Suspect]
     Active Substance: RISPERIDONE
     Indication: Schizophrenia
     Dosage: UNK
     Dates: start: 1997
  2. RISPERIDONE [Suspect]
     Active Substance: RISPERIDONE
     Dosage: 4 MILLIGRAM, ONCE A DAY
     Route: 065
     Dates: start: 2005, end: 2006
  3. RISPERIDONE [Suspect]
     Active Substance: RISPERIDONE
     Dosage: 3 MILLIGRAM, ONCE A DAY
     Route: 065
     Dates: start: 2015
  4. RISPERIDONE [Suspect]
     Active Substance: RISPERIDONE
     Dosage: 2 MILLIGRAM, ONCE A DAY (AT NIGHT)
     Route: 065
     Dates: start: 2016
  5. RISPERIDONE [Suspect]
     Active Substance: RISPERIDONE
     Dosage: 3 MILLIGRAM, ONCE A DAY (INCREASED TO 3MG AT NIGHT)
     Route: 065
     Dates: start: 2016
  6. PROCYCLIDINE [Suspect]
     Active Substance: PROCYCLIDINE
     Indication: Schizophrenia
     Dosage: 2.5 MILLIGRAM, 3 TIMES A DAY (BETWEEN 2016 AND 2022)
     Route: 065
  7. CLONAZEPAM [Concomitant]
     Active Substance: CLONAZEPAM
     Indication: Movement disorder
     Dosage: 250 MICROGRAM, ONCE A DAY
     Route: 065
     Dates: start: 2005
  8. CLONAZEPAM [Concomitant]
     Active Substance: CLONAZEPAM
     Dosage: 250 MICROGRAM, 3 TIMES A DAY
     Route: 065
     Dates: start: 2005
  9. CLONAZEPAM [Concomitant]
     Active Substance: CLONAZEPAM
     Dosage: 500 MICROGRAM, ONCE A DAY
     Route: 065
     Dates: start: 2015
  10. CLONAZEPAM [Concomitant]
     Active Substance: CLONAZEPAM
     Dosage: 500 MICROGRAM, ONCE A DAY
     Route: 065
     Dates: start: 2016

REACTIONS (4)
  - Tardive dyskinesia [Recovering/Resolving]
  - Loss of personal independence in daily activities [Recovering/Resolving]
  - Dystonia [Recovering/Resolving]
  - Tic [Recovering/Resolving]

NARRATIVE: CASE EVENT DATE: 19970101
